FAERS Safety Report 18440295 (Version 1)
Quarter: 2020Q4

REPORT INFORMATION
  Report Type: Spontaneous
  Country: US (occurrence: US)
  Receive Date: 20201029
  Receipt Date: 20201029
  Transmission Date: 20210114
  Serious: Yes (Other)
  Sender: FDA-Public Use
  Company Number: US-DRREDDYS-USA/USA/20/0128526

PATIENT
  Age: 34 Year
  Sex: Male

DRUGS (1)
  1. NALOXONE HYDROCHLORIDE. [Suspect]
     Active Substance: NALOXONE HYDROCHLORIDE
     Indication: LOSS OF CONSCIOUSNESS

REACTIONS (2)
  - Drug ineffective [Unknown]
  - Haemophilus infection [Unknown]
